FAERS Safety Report 6839623-9 (Version None)
Quarter: 2010Q2

REPORT INFORMATION
  Report Type: 
  Country: None (occurrence: None)
  Receive Date: 20100629
  Receipt Date: 20100409
  Transmission Date: 20101027
  Serious: No
  Sender: FDA-Public Use
  Company Number: US-WYE-H14629710

PATIENT
  Age: 39 Year
  Sex: Female
  Weight: 46.31 kg

DRUGS (4)
  1. PRISTIQ [Suspect]
     Indication: ANXIETY
     Dosage: 50 MG 1X PER 1 DAY, ORAL
     Route: 048
     Dates: start: 20100301
  2. PRISTIQ [Suspect]
     Indication: DEPRESSION
     Dosage: 50 MG 1X PER 1 DAY, ORAL
     Route: 048
     Dates: start: 20100301
  3. PRISTIQ [Suspect]
     Indication: PANIC DISORDER
     Dosage: 50 MG 1X PER 1 DAY, ORAL
     Route: 048
     Dates: start: 20100301
  4. HYDROCODONE BITARTRATE [Concomitant]

REACTIONS (5)
  - ARTHRALGIA [None]
  - MUSCULOSKELETAL STIFFNESS [None]
  - PAIN [None]
  - SINUS DISORDER [None]
  - SOMNOLENCE [None]
